FAERS Safety Report 16526288 (Version 1)
Quarter: 2019Q3

REPORT INFORMATION
  Report Type: Spontaneous
  Country: GR (occurrence: GR)
  Receive Date: 20190703
  Receipt Date: 20190703
  Transmission Date: 20191004
  Serious: Yes (Death, Other)
  Sender: FDA-Public Use
  Company Number: GR-SA-2019SA178154

PATIENT
  Age: 85 Year
  Sex: Female

DRUGS (1)
  1. ENOXAPARIN SODIUM. [Suspect]
     Active Substance: ENOXAPARIN SODIUM
     Dosage: .000 ANTI- XAIU/0,8 ML DAILY
     Route: 058

REACTIONS (1)
  - Pulmonary embolism [Fatal]
